FAERS Safety Report 25880387 (Version 1)
Quarter: 2025Q4

REPORT INFORMATION
  Report Type: Spontaneous
  Country: CN (occurrence: CN)
  Receive Date: 20251004
  Receipt Date: 20251004
  Transmission Date: 20260118
  Serious: Yes (Other)
  Sender: ABBVIE
  Company Number: CN-PFIZER INC-PV202500116015

PATIENT
  Age: 91 Year
  Sex: Male
  Weight: 60 kg

DRUGS (1)
  1. AVIBACTAM SODIUM\CEFTAZIDIME [Suspect]
     Active Substance: AVIBACTAM SODIUM\CEFTAZIDIME
     Indication: Pneumonia
     Dosage: 2.25 G, 3X/DAY
     Route: 041
     Dates: start: 20250822, end: 20250906

REACTIONS (1)
  - Platelet count decreased [Recovering/Resolving]

NARRATIVE: CASE EVENT DATE: 20250902
